FAERS Safety Report 5822151-7 (Version None)
Quarter: 2008Q3

REPORT INFORMATION
  Report Type: 
  Country: None (occurrence: None)
  Receive Date: 20080725
  Receipt Date: 20080718
  Transmission Date: 20090109
  Serious: Yes (Death, Hospitalization, Other)
  Sender: FDA-Public Use
  Company Number: PHBS2008IT05184

PATIENT
  Age: 11 Year
  Sex: Male

DRUGS (11)
  1. BASILIXIMAB [Suspect]
     Indication: LIVER TRANSPLANT
     Dosage: 20 MG, ONCE/SINGLE
     Route: 042
  2. BASILIXIMAB [Suspect]
     Indication: INTESTINAL TRANSPLANT
     Dosage: 20 MG, ONCE/SINGLE
  3. BASILIXIMAB [Suspect]
     Dosage: 20 MG, ONCE/SINGLE
  4. TACROLIMUS [Suspect]
     Indication: TRANSPLANT
     Dosage: 0.075 MG/KG, BID
  5. METHYLPREDNISOLONE [Suspect]
     Indication: TRANSPLANT
     Dosage: 2 MG/KG, QD
     Route: 042
  6. PREDNISOLONE [Suspect]
     Indication: TRANSPLANT
     Dosage: 2 MG/KG, DAY
     Route: 048
  7. PREDNISOLONE [Suspect]
     Dosage: 1 MG/KG, DAY
  8. PREDNISOLONE [Suspect]
     Dosage: 0.75 MG/KG, DAY
  9. PREDNISOLONE [Suspect]
     Dosage: 0.5 MG/KG, DAY
     Route: 048
  10. RITUXIMAB [Concomitant]
     Dosage: 375 MG/M2, QW
  11. IMMUNOGLOBULINS [Concomitant]
     Dosage: 0.4 G/KG, EVERY 2-3 WEEKS

REACTIONS (12)
  - ABDOMINAL DISTENSION [None]
  - EPSTEIN-BARR VIRAEMIA [None]
  - GASTROENTERITIS ADENOVIRUS [None]
  - GASTROINTESTINAL HAEMORRHAGE [None]
  - LIVER FUNCTION TEST ABNORMAL [None]
  - LYMPHOPENIA [None]
  - MULTI-ORGAN FAILURE [None]
  - PLEURAL EFFUSION [None]
  - PNEUMONIA [None]
  - RESPIRATORY FAILURE [None]
  - SEPSIS [None]
  - TRANSPLANT REJECTION [None]
